FAERS Safety Report 5918302-6 (Version None)
Quarter: 2008Q4

REPORT INFORMATION
  Report Type: 
  Country: None (occurrence: None)
  Receive Date: 20081010
  Receipt Date: 20080929
  Transmission Date: 20090506
  Serious: Yes (Other)
  Sender: FDA-Public Use
  Company Number: TRP_05868_2008

PATIENT
  Sex: Female

DRUGS (8)
  1. INFERGEN [Suspect]
     Indication: HEPATITIS C
     Dosage: 15 UG QD SUBCUTANEOUS
     Route: 058
     Dates: start: 20080724
  2. RIBAVIRIN [Suspect]
     Indication: HEPATITIS C
     Dosage: 1000 MG, [400 MG QAM AND 600 MG QPM] ORAL
     Route: 048
     Dates: start: 20080724
  3. LORAZEPAM [Concomitant]
  4. EFFEXOR XR [Concomitant]
  5. SEROQUEL [Concomitant]
  6. KLOR-CON M [Concomitant]
  7. LEVOTHYROXINE SODIUM [Concomitant]
  8. TRIAMTERENE AND HYDROCHLOROTHIAZIDE [Concomitant]

REACTIONS (20)
  - ABASIA [None]
  - ANXIETY [None]
  - BALANCE DISORDER [None]
  - CHEST PAIN [None]
  - CHILLS [None]
  - CONFUSIONAL STATE [None]
  - DEHYDRATION [None]
  - DYSPNOEA [None]
  - FALL [None]
  - FATIGUE [None]
  - FEELING ABNORMAL [None]
  - HEADACHE [None]
  - HYPERSOMNIA [None]
  - HYPOAESTHESIA [None]
  - INSOMNIA [None]
  - MOOD ALTERED [None]
  - NAUSEA [None]
  - PERIPHERAL COLDNESS [None]
  - PYREXIA [None]
  - ROAD TRAFFIC ACCIDENT [None]
